FAERS Safety Report 4314811-4 (Version None)
Quarter: 2004Q1

REPORT INFORMATION
  Report Type: 
  Country: None (occurrence: None)
  Receive Date: 20040310
  Receipt Date: 20031223
  Transmission Date: 20041129
  Serious: Yes (Hospitalization)
  Sender: FDA-Public Use
  Company Number: PHNU2003DE04482

PATIENT
  Sex: Male

DRUGS (1)
  1. PROVAS [Suspect]
     Route: 048

REACTIONS (6)
  - INFLAMMATION [None]
  - NEURITIS CRANIAL [None]
  - PARAESTHESIA [None]
  - PARAESTHESIA ORAL [None]
  - SINUSITIS [None]
  - VISUAL DISTURBANCE [None]
